FAERS Safety Report 23100582 (Version 1)
Quarter: 2023Q4

REPORT INFORMATION
  Report Type: Spontaneous
  Country: IN (occurrence: IN)
  Receive Date: 20231024
  Receipt Date: 20231024
  Transmission Date: 20240109
  Serious: Yes (Other)
  Sender: FDA-Public Use
  Company Number: IN-PFIZER INC-PV202300023534

PATIENT
  Age: 50 Year
  Sex: Male
  Weight: 64.2 kg

DRUGS (7)
  1. LORLATINIB [Suspect]
     Active Substance: LORLATINIB
     Indication: Lung adenocarcinoma
     Dosage: 100 MG, 1X/DAY
     Route: 048
     Dates: start: 202202
  2. LORLATINIB [Suspect]
     Active Substance: LORLATINIB
     Dosage: 125 MG, DAILY
     Route: 048
  3. LORLATINIB [Suspect]
     Active Substance: LORLATINIB
     Dosage: 100 MG, DAILY
     Route: 048
  4. LORLATINIB [Suspect]
     Active Substance: LORLATINIB
     Dosage: ONE TABLET IN THE MORNING AND ONE TABLET IN THE EVENING
     Route: 048
  5. LORLATINIB [Suspect]
     Active Substance: LORLATINIB
     Dosage: 25 MG ONE TABLET IN THE MORNING AND ONE TABLET IN THE EVENING (25MG 2 TAB OD)
     Route: 048
  6. LORLATINIB [Suspect]
     Active Substance: LORLATINIB
     Dosage: 25MG OD
     Route: 048
  7. LORLATINIB [Suspect]
     Active Substance: LORLATINIB
     Dosage: 50MG OD(25 MG 2 TABLETS)
     Route: 048

REACTIONS (7)
  - Hepatic lesion [Unknown]
  - Neoplasm progression [Unknown]
  - Hypoacusis [Unknown]
  - Tinnitus [Unknown]
  - Off label use [Unknown]
  - Inappropriate schedule of product administration [Unknown]
  - Product prescribing issue [Unknown]
